FAERS Safety Report 6965652-0 (Version None)
Quarter: 2010Q3

REPORT INFORMATION
  Report Type: 
  Country: None (occurrence: None)
  Receive Date: 20100903
  Receipt Date: 20100824
  Transmission Date: 20110219
  Serious: Yes (Other)
  Sender: FDA-Public Use
  Company Number: US-ROCHE-663814

PATIENT
  Sex: Male
  Weight: 72.6 kg

DRUGS (2)
  1. ACCUTANE [Suspect]
     Indication: ACNE
     Dosage: STRENGTH: 20MG AND 40MG
     Route: 048
     Dates: start: 20011106, end: 20020301
  2. IBUPROFEN [Concomitant]
     Indication: BACK PAIN

REACTIONS (12)
  - ANAEMIA [None]
  - ANKYLOSING SPONDYLITIS [None]
  - ANXIETY [None]
  - ARTHRALGIA [None]
  - BACK PAIN [None]
  - CROHN'S DISEASE [None]
  - DEPRESSION [None]
  - DRY SKIN [None]
  - HEADACHE [None]
  - INFLAMMATORY BOWEL DISEASE [None]
  - MENTAL DISORDER [None]
  - RHEUMATOID ARTHRITIS [None]
